FAERS Safety Report 4706827-0 (Version None)
Quarter: 2005Q3

REPORT INFORMATION
  Report Type: 
  Country: None (occurrence: None)
  Receive Date: 20050705
  Receipt Date: 20050622
  Transmission Date: 20060218
  Serious: Yes (Hospitalization, Other)
  Sender: FDA-Public Use
  Company Number: 2005091238

PATIENT
  Age: 8 Year
  Sex: Female

DRUGS (6)
  1. DETROL LA [Suspect]
     Indication: NEUROGENIC BLADDER
     Dates: end: 20050501
  2. PORT-A-CATH (PORT-A-CATH) [Suspect]
     Indication: ILL-DEFINED DISORDER
  3. OMEPRAZOLE [Concomitant]
  4. GLYCOPYRRONIUM BROMIDE [Concomitant]
  5. LEVOSALBUTAMOL [Concomitant]
  6. BUDESONIDE [Concomitant]

REACTIONS (11)
  - AUTONOMIC NERVOUS SYSTEM IMBALANCE [None]
  - CATHETER SEPSIS [None]
  - CONDITION AGGRAVATED [None]
  - DRUG INEFFECTIVE [None]
  - HYPERHIDROSIS [None]
  - HYPERTENSION [None]
  - HYPOTENSION [None]
  - HYPOTHERMIA [None]
  - SEPTIC SHOCK [None]
  - SEROTONIN SYNDROME [None]
  - URINARY INCONTINENCE [None]
